FAERS Safety Report 7550224-X (Version None)
Quarter: 2011Q2

REPORT INFORMATION
  Report Type: 
  Country: None (occurrence: None)
  Receive Date: 20110615
  Receipt Date: 20110607
  Transmission Date: 20111010
  Serious: Yes (Death, Hospitalization)
  Sender: FDA-Public Use
  Company Number: US-GILEAD-2011-0037179

PATIENT
  Sex: Female

DRUGS (7)
  1. COUMADIN [Concomitant]
     Route: 048
  2. OMEPRAZOLE [Concomitant]
  3. ADCIRCA [Concomitant]
  4. LEXAPRO [Concomitant]
  5. REMODULIN [Concomitant]
     Route: 058
     Dates: start: 20100220
  6. NIFEDIPINE [Concomitant]
  7. LETAIRIS [Suspect]
     Indication: PULMONARY HYPERTENSION
     Route: 048
     Dates: start: 20090701, end: 20110204

REACTIONS (1)
  - HEPATIC FAILURE [None]
